FAERS Safety Report 6101970-6 (Version None)
Quarter: 2009Q1

REPORT INFORMATION
  Report Type: 
  Country: None (occurrence: None)
  Receive Date: 20090304
  Receipt Date: 20090220
  Transmission Date: 20090719
  Serious: Yes (Other)
  Sender: FDA-Public Use
  Company Number: ZA-PFIZER INC-2009174613

PATIENT

DRUGS (2)
  1. LYRICA [Suspect]
     Indication: POST HERPETIC NEURALGIA
     Dosage: FREQUENCY: BD,
     Route: 048
  2. LYRICA [Suspect]
     Dosage: FREQUENCY: BD,
     Route: 048

REACTIONS (4)
  - DYSKINESIA [None]
  - SEPSIS [None]
  - TRANCE [None]
  - URINARY TRACT INFECTION [None]
